FAERS Safety Report 8914467 (Version 1)
Quarter: 2012Q4

REPORT INFORMATION
  Report Type: 
  Country: US (occurrence: US)
  Receive Date: 20121116
  Receipt Date: 20121116
  Transmission Date: 20130627
  Serious: No
  Sender: FDA-Public Use
  Company Number: US-TEVA-368390USA

PATIENT
  Sex: Male

DRUGS (1)
  1. ACTIQ [Suspect]
     Dates: end: 201109

REACTIONS (1)
  - Pain [Unknown]
